FAERS Safety Report 18493828 (Version 4)
Quarter: 2022Q1

REPORT INFORMATION
  Report Type: Report from Study
  Country: JP (occurrence: JP)
  Receive Date: 20201111
  Receipt Date: 20220330
  Transmission Date: 20220423
  Serious: Yes (Hospitalization, Other)
  Sender: FDA-Public Use
  Company Number: JP-TAKEDA-JP201933226

PATIENT
  Age: 25 Year
  Sex: Female

DRUGS (23)
  1. VELAGLUCERASE ALFA [Suspect]
     Active Substance: VELAGLUCERASE ALFA
     Indication: Gaucher^s disease type III
     Dosage: 60 INTERNATIONAL UNIT/KILOGRAM, 1X/2WKS
     Route: 042
     Dates: start: 20180704
  2. TEPRENONE [Concomitant]
     Active Substance: TEPRENONE
     Indication: Product used for unknown indication
     Dosage: 150 MILLIGRAM, UNKNOWN
     Route: 048
     Dates: end: 201905
  3. METHYLCOBALAMIN [Concomitant]
     Active Substance: METHYLCOBALAMIN
     Indication: Product used for unknown indication
     Dosage: 1500 MICROGRAM, UNKNOWN
     Route: 048
     Dates: end: 201905
  4. CALONAL [Concomitant]
     Active Substance: ACETAMINOPHEN
     Indication: Gaucher^s disease type III
     Dosage: 1800 MILLIGRAM, UNKNOWN
     Route: 048
  5. CALONAL [Concomitant]
     Active Substance: ACETAMINOPHEN
     Dosage: 200 UNK
     Route: 048
  6. LOXOPROFEN SODIUM [Concomitant]
     Active Substance: LOXOPROFEN SODIUM
     Indication: Adverse event
     Dosage: 113.4 MILLIGRAM
     Route: 050
     Dates: start: 20190814, end: 20191023
  7. MINODRONIC ACID [Concomitant]
     Active Substance: MINODRONIC ACID
     Indication: Product used for unknown indication
     Dosage: 50 MILLIGRAM, UNKNOWN
     Route: 048
     Dates: end: 201905
  8. LEVETIRACETAM [Concomitant]
     Active Substance: LEVETIRACETAM
     Indication: Gaucher^s disease type III
     Dosage: 1000-1250 MILLIGRAM
     Route: 048
     Dates: end: 20181106
  9. LEVETIRACETAM [Concomitant]
     Active Substance: LEVETIRACETAM
     Dosage: 1250 MILLIGRAM
     Route: 048
     Dates: start: 20181107
  10. LEVETIRACETAM [Concomitant]
     Active Substance: LEVETIRACETAM
     Dosage: 3000 MILLIGRAM
     Route: 048
  11. ATARAX-P [HYDROXYZINE EMBONATE] [Concomitant]
     Indication: Prophylaxis
     Dosage: 0.25 MILLILITER, UNKNOWN
     Route: 042
     Dates: end: 20190410
  12. AMOXICILLIN\CLAVULANATE POTASSIUM [Concomitant]
     Active Substance: AMOXICILLIN\CLAVULANATE POTASSIUM
     Indication: Adverse event
     Dosage: 3 DOSAGE FORM
     Route: 048
  13. SOLDEM 3A [Concomitant]
     Active Substance: CARBOHYDRATES\POTASSIUM CHLORIDE\SODIUM CHLORIDE\SODIUM LACTATE
     Indication: Adverse event
     Dosage: 500 MILLILITER
     Route: 042
     Dates: start: 20190911, end: 20190911
  14. SOLDEM 3A [Concomitant]
     Active Substance: CARBOHYDRATES\POTASSIUM CHLORIDE\SODIUM CHLORIDE\SODIUM LACTATE
     Dosage: 500 MILLILITER
     Route: 042
     Dates: start: 20191009, end: 20191009
  15. SOLDEM 3A [Concomitant]
     Active Substance: CARBOHYDRATES\POTASSIUM CHLORIDE\SODIUM CHLORIDE\SODIUM LACTATE
     Dosage: 500 MILLILITER
     Route: 042
     Dates: start: 20191023, end: 20191023
  16. SOLDEM 3A [Concomitant]
     Active Substance: CARBOHYDRATES\POTASSIUM CHLORIDE\SODIUM CHLORIDE\SODIUM LACTATE
     Dosage: 200 MILLILITER
     Route: 042
     Dates: start: 20191106, end: 20191106
  17. SOLDEM 3A [Concomitant]
     Active Substance: CARBOHYDRATES\POTASSIUM CHLORIDE\SODIUM CHLORIDE\SODIUM LACTATE
     Dosage: 1000 MILLILITER
     Route: 042
     Dates: start: 20200318, end: 20200319
  18. RIVOTRIL [Concomitant]
     Active Substance: CLONAZEPAM
     Indication: Gaucher^s disease type III
     Dosage: 6 MILLIGRAM
     Route: 048
  19. VALPROATE SODIUM [Concomitant]
     Active Substance: VALPROATE SODIUM
     Indication: Gaucher^s disease type III
     Dosage: 1400 MILLIGRAM
     Route: 048
  20. TOPIRAMATE [Concomitant]
     Active Substance: TOPIRAMATE
     Indication: Gaucher^s disease type III
     Dosage: 200 MILLIGRAM
     Route: 048
  21. FYCOMPA [Concomitant]
     Active Substance: PERAMPANEL
     Indication: Gaucher^s disease type III
     Dosage: 6 MILLIGRAM
     Route: 048
  22. CARBOCYSTEINE [Concomitant]
     Active Substance: CARBOCYSTEINE
     Indication: Adverse event
     Dosage: 750 MILLIGRAM
     Route: 048
     Dates: start: 20190925
  23. DOMPERIDONE [Concomitant]
     Active Substance: DOMPERIDONE
     Indication: Product used for unknown indication
     Dosage: 1 DOSAGE FORM, SINGLE
     Route: 048
     Dates: start: 20210624, end: 20210624

REACTIONS (24)
  - Myoclonus [Recovered/Resolved]
  - Condition aggravated [Recovered/Resolved]
  - Myoclonus [Recovering/Resolving]
  - Condition aggravated [Recovering/Resolving]
  - Hypokalaemia [Recovered/Resolved]
  - Condition aggravated [Recovered/Resolved]
  - Hypokalaemia [Recovered/Resolved]
  - Condition aggravated [Recovered/Resolved]
  - Pyrexia [Recovered/Resolved]
  - Hypocalcaemia [Recovered/Resolved]
  - Condition aggravated [Recovered/Resolved]
  - Hypoalbuminaemia [Not Recovered/Not Resolved]
  - Hypertonia [Not Recovered/Not Resolved]
  - Hyperammonaemia [Not Recovered/Not Resolved]
  - Platelet count decreased [Recovering/Resolving]
  - Hepatic function abnormal [Recovered/Resolved]
  - Cystitis [Recovered/Resolved]
  - Pain in extremity [Recovered/Resolved]
  - Blood creatine phosphokinase increased [Recovered/Resolved]
  - Dehydration [Recovered/Resolved]
  - Bronchitis [Recovered/Resolved]
  - Eye movement disorder [Recovered/Resolved]
  - Delusion [Recovered/Resolved]
  - Hepatic function abnormal [Recovering/Resolving]

NARRATIVE: CASE EVENT DATE: 20181029
